FAERS Safety Report 18189197 (Version 1)
Quarter: 2020Q3

REPORT INFORMATION
  Report Type: Spontaneous
  Country: FR (occurrence: FR)
  Receive Date: 20200824
  Receipt Date: 20200824
  Transmission Date: 20201103
  Serious: Yes (Congenital Anomaly)
  Sender: FDA-Public Use
  Company Number: NVSC2020FR230615

PATIENT
  Age: 1 Day
  Sex: Male
  Weight: 3.36 kg

DRUGS (3)
  1. DONORMYL (DOXYLAMINE SUCCINATE) [Suspect]
     Active Substance: DOXYLAMINE SUCCINATE
     Indication: FOETAL EXPOSURE DURING PREGNANCY
     Dosage: UNK UNK, UNKNOWN
     Route: 064
  2. BECILAN [Suspect]
     Active Substance: PYRIDOXINE
     Indication: FOETAL EXPOSURE DURING PREGNANCY
     Dosage: UNK UNK, UNKNOWN
     Route: 064
  3. ZOPHREN [Suspect]
     Active Substance: ONDANSETRON
     Indication: FOETAL EXPOSURE DURING PREGNANCY
     Dosage: UNK UNK, UNKNOWN
     Route: 064

REACTIONS (4)
  - Pyelocaliectasis [Unknown]
  - Aplasia cutis congenita [Unknown]
  - Congenital megaureter [Unknown]
  - Bladder diverticulum [Unknown]

NARRATIVE: CASE EVENT DATE: 2017
